FAERS Safety Report 5408706-2 (Version None)
Quarter: 2007Q3

REPORT INFORMATION
  Report Type: 
  Country: None (occurrence: None)
  Receive Date: 20070808
  Receipt Date: 20070803
  Transmission Date: 20080115
  Serious: Yes (Other)
  Sender: FDA-Public Use
  Company Number: A0668142A

PATIENT
  Age: 29 Year
  Sex: Male

DRUGS (6)
  1. WELLBUTRIN SR [Suspect]
     Indication: DEPRESSION
     Dosage: 150MG PER DAY
     Route: 048
     Dates: start: 20070505, end: 20070501
  2. LISINOPRIL [Concomitant]
  3. FISH OIL [Concomitant]
  4. GARLIC [Concomitant]
  5. MULTI-VITAMIN [Concomitant]
  6. HORNY GOAT WEED [Concomitant]

REACTIONS (10)
  - ACTIVITIES OF DAILY LIVING IMPAIRED [None]
  - AMNESIA [None]
  - ANXIETY [None]
  - APHASIA [None]
  - CHILLS [None]
  - DISTURBANCE IN ATTENTION [None]
  - INSOMNIA [None]
  - PANIC ATTACK [None]
  - SEXUAL DYSFUNCTION [None]
  - TREMOR [None]
